FAERS Safety Report 15924206 (Version 1)
Quarter: 2019Q1

REPORT INFORMATION
  Report Type: Spontaneous
  Country: FR (occurrence: FR)
  Receive Date: 20190206
  Receipt Date: 20190206
  Transmission Date: 20190417
  Serious: Yes (Life-Threatening)
  Sender: FDA-Public Use
  Company Number: FR-SUN PHARMACEUTICAL INDUSTRIES LTD-2019RR-198412

PATIENT
  Age: 45 Year
  Sex: Female
  Weight: 42 kg

DRUGS (3)
  1. CODEINE [Suspect]
     Active Substance: CODEINE
     Indication: POISONING DELIBERATE
     Dosage: ()
     Route: 048
     Dates: start: 20190105
  2. VALIUM [Concomitant]
     Active Substance: DIAZEPAM
     Indication: POISONING DELIBERATE
     Dosage: ()
     Route: 048
     Dates: start: 20190105
  3. PARACETAMOL [Suspect]
     Active Substance: ACETAMINOPHEN
     Indication: POISONING DELIBERATE
     Dosage: ()
     Route: 048
     Dates: start: 20190105

REACTIONS (1)
  - Hepatitis fulminant [Recovering/Resolving]

NARRATIVE: CASE EVENT DATE: 20190105
